FAERS Safety Report 23097044 (Version 2)
Quarter: 2023Q4

REPORT INFORMATION
  Report Type: Report from Study
  Country: US (occurrence: US)
  Receive Date: 20231023
  Receipt Date: 20231104
  Transmission Date: 20240109
  Serious: Yes (Hospitalization)
  Sender: FDA-Public Use
  Company Number: US-Accord-386099

PATIENT
  Sex: Male
  Weight: 92.71 kg

DRUGS (1)
  1. CLOZAPINE [Suspect]
     Active Substance: CLOZAPINE
     Indication: Schizophrenia
     Dosage: 75MG ONCE DAILY AT BEDTIME
     Dates: start: 20230721

REACTIONS (1)
  - Acute psychosis [Unknown]
